FAERS Safety Report 10907284 (Version 2)
Quarter: 2015Q2

REPORT INFORMATION
  Report Type: Spontaneous
  Country: US (occurrence: US)
  Receive Date: 20150312
  Receipt Date: 20150504
  Transmission Date: 20150821
  Serious: Yes (Death, Hospitalization, Other)
  Sender: FDA-Public Use
  Company Number: US-INCYTE CORPORATION-2015IN000915

PATIENT
  Age: 67 Year
  Sex: Male
  Weight: 87.53 kg

DRUGS (2)
  1. JAKAFI [Suspect]
     Active Substance: RUXOLITINIB
     Indication: MYELOFIBROSIS
     Dosage: 5 MG, BID
     Route: 048
     Dates: start: 20150214
  2. HYDREA [Concomitant]
     Active Substance: HYDROXYUREA

REACTIONS (5)
  - Haemoglobin decreased [Unknown]
  - White blood cell count increased [Unknown]
  - Myelofibrosis [Fatal]
  - Epistaxis [Recovered/Resolved]
  - Thrombocytopenia [Recovered/Resolved]

NARRATIVE: CASE EVENT DATE: 20150302
